FAERS Safety Report 10509075 (Version 2)
Quarter: 2015Q1

REPORT INFORMATION
  Report Type: Spontaneous
  Country: DK (occurrence: DK)
  Receive Date: 20141009
  Receipt Date: 20150113
  Transmission Date: 20150720
  Serious: Yes (Hospitalization, Other)
  Sender: FDA-Public Use
  Company Number: DK-ROCHE-1470533

PATIENT
  Age: 66 Year
  Sex: Female
  Weight: 85 kg

DRUGS (3)
  1. VINORELBINE [Suspect]
     Active Substance: VINORELBINE\VINORELBINE TARTRATE
     Indication: BREAST CANCER RECURRENT
     Route: 065
  2. HERCEPTIN [Suspect]
     Active Substance: TRASTUZUMAB
     Indication: BREAST CANCER RECURRENT
     Route: 058
     Dates: start: 20141002, end: 20141002
  3. PERJETA [Suspect]
     Active Substance: PERTUZUMAB
     Indication: BREAST CANCER RECURRENT
     Route: 042
     Dates: start: 20141002, end: 20141002

REACTIONS (5)
  - Dyspnoea [Unknown]
  - Pyrexia [Unknown]
  - Dyspnoea [Recovered/Resolved]
  - Hyperventilation [Unknown]
  - Blood pressure increased [Unknown]

NARRATIVE: CASE EVENT DATE: 20141002
